FAERS Safety Report 9668866 (Version 1)
Quarter: 2013Q4

REPORT INFORMATION
  Report Type: Spontaneous
  Country: CN (occurrence: CN)
  Receive Date: 20131105
  Receipt Date: 20131105
  Transmission Date: 20140711
  Serious: Yes (Hospitalization)
  Sender: FDA-Public Use
  Company Number: PHHY2013CN124421

PATIENT
  Age: 31 Year
  Sex: Male

DRUGS (1)
  1. MIACALCIN (CALCITONIN SALMON) [Suspect]
     Indication: PANCREATIC CARCINOMA
     Dosage: 50 IU, QD
     Route: 030
     Dates: start: 20120731, end: 20120731

REACTIONS (6)
  - Pallor [Recovering/Resolving]
  - Abdominal pain [Recovering/Resolving]
  - Dizziness [Recovering/Resolving]
  - Diarrhoea [Recovering/Resolving]
  - Vomiting [Recovering/Resolving]
  - Nausea [Recovering/Resolving]
